FAERS Safety Report 17999148 (Version 1)
Quarter: 2020Q3

REPORT INFORMATION
  Report Type: Spontaneous
  Country: US (occurrence: US)
  Receive Date: 20200708
  Receipt Date: 20200708
  Transmission Date: 20201103
  Serious: No
  Sender: FDA-Public Use
  Company Number: None

PATIENT
  Age: 52 Year
  Sex: Female
  Weight: 2.25 kg

DRUGS (1)
  1. TRIAMTERENE/HYDROCHLOROTHIAZIDE 75MG/50MG [Suspect]
     Active Substance: TRIAMTERENE-HYDROCHLOROTHIAZIDE
     Indication: HYPERTENSION
     Dosage: ?
     Route: 048
     Dates: start: 20200515, end: 20200708

REACTIONS (1)
  - Renal disorder [None]

NARRATIVE: CASE EVENT DATE: 20200708
